FAERS Safety Report 10143605 (Version 1)
Quarter: 2014Q2

REPORT INFORMATION
  Report Type: Spontaneous
  Country: US (occurrence: None)
  Receive Date: 20140429
  Receipt Date: 20140429
  Transmission Date: 20141212
  Serious: Yes (Life-Threatening, Hospitalization, Other)
  Sender: FDA-Public Use
  Company Number: None

PATIENT
  Age: 80 Year
  Sex: Male
  Weight: 57.8 kg

DRUGS (6)
  1. CEFEPIME [Suspect]
     Indication: PNEUMONIA
     Route: 042
     Dates: start: 20140324, end: 20140331
  2. UNASYN [Concomitant]
  3. ZOSYN [Concomitant]
  4. LEVAQUIN [Concomitant]
  5. VANCOMYCIN [Concomitant]
  6. LEVAQUIN [Concomitant]

REACTIONS (1)
  - Pancytopenia [None]
